FAERS Safety Report 5846260-1 (Version None)
Quarter: 2008Q3

REPORT INFORMATION
  Report Type: 
  Country: None (occurrence: None)
  Receive Date: 20080813
  Receipt Date: 20080808
  Transmission Date: 20090109
  Serious: Yes (Other)
  Sender: FDA-Public Use
  Company Number: 2008SP013165

PATIENT
  Age: 57 Year
  Sex: Male
  Weight: 56 kg

DRUGS (12)
  1. PEG-INTRON [Suspect]
     Indication: HEPATITIS C
     Dosage: 80 MCG;QW; SC
     Route: 058
     Dates: start: 20080325
  2. REBETOL [Suspect]
     Indication: HEPATITIS C
     Dosage: 600 MG; QD; PO, 400 MG, QD; PO
     Route: 048
     Dates: start: 20080325, end: 20080406
  3. REBETOL [Suspect]
     Indication: HEPATITIS C
     Dosage: 600 MG; QD; PO, 400 MG, QD; PO
     Route: 048
     Dates: start: 20080407, end: 20080701
  4. REBETOL [Suspect]
     Indication: HEPATITIS C
     Dosage: 600 MG; QD; PO, 400 MG, QD; PO
     Route: 048
     Dates: start: 20080703
  5. CYANOCOBALAMIN [Concomitant]
  6. HALCION [Concomitant]
  7. ZYLORIC [Concomitant]
  8. YOUTIAZEM [Concomitant]
  9. PAXIL [Concomitant]
  10. ROHYPNOL [Concomitant]
  11. ALESION [Concomitant]
  12. LANTUS [Concomitant]

REACTIONS (4)
  - DISCOMFORT [None]
  - DYSKINESIA [None]
  - HAEMOGLOBIN DECREASED [None]
  - TREMOR [None]
